FAERS Safety Report 8769348 (Version 2)
Quarter: 2012Q4

REPORT INFORMATION
  Report Type: 
  Country: US (occurrence: US)
  Receive Date: 20120905
  Receipt Date: 20121226
  Transmission Date: 20130627
  Serious: Yes (Hospitalization, Disabling, Other)
  Sender: FDA-Public Use
  Company Number: US-009507513-1103USA00964

PATIENT

DRUGS (6)
  1. FOSAMAX [Suspect]
     Indication: OSTEOPENIA
     Dosage: 70 mg, QW
     Route: 048
     Dates: start: 20021101, end: 200808
  2. FOSAMAX [Suspect]
     Indication: OSTEOPOROSIS
  3. ALENDRONATE SODIUM [Suspect]
     Indication: OSTEOPENIA
     Dosage: 70 mg, QW
     Route: 048
     Dates: start: 20080918, end: 200906
  4. ALENDRONATE SODIUM [Suspect]
     Indication: OSTEOPOROSIS
  5. MK-9278 [Concomitant]
     Indication: PRODUCT USED FOR UNKNOWN INDICATION
     Route: 048
     Dates: start: 1999
  6. CALCIUM (UNSPECIFIED) (+) VITAMIN D (UNSPECIFIED) [Concomitant]
     Indication: PRODUCT USED FOR UNKNOWN INDICATION
     Dosage: 1200 mg, qd
     Route: 048
     Dates: start: 1999

REACTIONS (66)
  - Femur fracture [Recovered/Resolved]
  - Haemorrhagic anaemia [Recovered/Resolved]
  - Haemorrhagic anaemia [Unknown]
  - Procedural nausea [Recovered/Resolved]
  - Wheezing [Unknown]
  - Myomectomy [Unknown]
  - Low turnover osteopathy [Not Recovered/Not Resolved]
  - Arthropathy [Unknown]
  - Arthrodesis [Unknown]
  - Open reduction of fracture [Recovering/Resolving]
  - Femur fracture [Recovered/Resolved]
  - Femur fracture [Recovering/Resolving]
  - Nausea [Unknown]
  - Fall [Unknown]
  - Post procedural infection [Unknown]
  - Vitamin D deficiency [Unknown]
  - Hypothyroidism [Recovering/Resolving]
  - Foot fracture [Unknown]
  - Wrist fracture [Unknown]
  - Fall [Unknown]
  - Syncope [Not Recovered/Not Resolved]
  - Salivary gland adenoma [Not Recovered/Not Resolved]
  - Weight increased [Unknown]
  - Carotid arteriosclerosis [Unknown]
  - Hypercholesterolaemia [Unknown]
  - Insomnia [Not Recovered/Not Resolved]
  - Pollakiuria [Unknown]
  - Stress urinary incontinence [Unknown]
  - Facial pain [Unknown]
  - Toothache [Unknown]
  - Stomatitis [Unknown]
  - Herpes zoster [Unknown]
  - Pain of skin [Unknown]
  - Somnolence [Unknown]
  - Adverse drug reaction [Unknown]
  - Biopsy breast normal [Unknown]
  - Ligament sprain [Unknown]
  - Incisional drainage [Recovered/Resolved]
  - Seroma [Unknown]
  - Sinusitis [Recovering/Resolving]
  - Hyponatraemia [Unknown]
  - Hyponatraemia [Recovered/Resolved]
  - Inappropriate antidiuretic hormone secretion [Unknown]
  - Arthropod bite [Unknown]
  - Asthenia [Unknown]
  - Urinary tract infection [Recovered/Resolved]
  - Urinary tract infection [Unknown]
  - Joint dislocation [Unknown]
  - Adverse drug reaction [Recovered/Resolved]
  - Muscular weakness [Unknown]
  - Iliotibial band syndrome [Unknown]
  - Hypertension [Unknown]
  - Pneumonia [Unknown]
  - Nausea [Unknown]
  - Arthralgia [Unknown]
  - Pain in extremity [Unknown]
  - Arthralgia [Not Recovered/Not Resolved]
  - Pain in extremity [Unknown]
  - Pain in extremity [Unknown]
  - Musculoskeletal pain [Unknown]
  - Headache [Unknown]
  - Muscle spasms [Unknown]
  - Alopecia [Unknown]
  - Dizziness [Recovered/Resolved]
  - Joint swelling [Unknown]
  - Drug ineffective [Unknown]
